FAERS Safety Report 6852786-4 (Version None)
Quarter: 2010Q3

REPORT INFORMATION
  Report Type: 
  Country: None (occurrence: None)
  Receive Date: 20100717
  Receipt Date: 20071121
  Transmission Date: 20110219
  Serious: No
  Sender: FDA-Public Use
  Company Number: US-PFIZER INC-2007100289

PATIENT
  Sex: Female
  Weight: 53.6 kg

DRUGS (1)
  1. CHANTIX [Suspect]
     Indication: SMOKING CESSATION THERAPY
     Dates: start: 20071116

REACTIONS (10)
  - AGGRESSION [None]
  - ANXIETY [None]
  - BRADYPHRENIA [None]
  - DISCOMFORT [None]
  - DISORIENTATION [None]
  - DYSGEUSIA [None]
  - FEELING ABNORMAL [None]
  - HEART RATE INCREASED [None]
  - IRRITABILITY [None]
  - VISION BLURRED [None]
